FAERS Safety Report 8858240 (Version 1)
Quarter: 2012Q4

REPORT INFORMATION
  Report Type: 
  Country: US (occurrence: US)
  Receive Date: 20121024
  Receipt Date: 20121024
  Transmission Date: 20130627
  Serious: No
  Sender: FDA-Public Use
  Company Number: US-AMGEN-USASP2011068955

PATIENT
  Age: 49 Year
  Sex: Female
  Weight: 97.51 kg

DRUGS (6)
  1. ENBREL [Suspect]
     Indication: PRODUCT USED FOR UNKNOWN INDICATION
     Dosage: 50 mg, qwk
     Route: 058
  2. TRAVATAN [Concomitant]
     Dosage: 0.004 %, UNK
  3. GLUCOSAMINE + CHONDROITIN COMPLEX [Concomitant]
     Dosage: 500 mg, UNK
  4. OMEGA 3 [Concomitant]
     Dosage: 1200 mg, UNK
  5. VITAMIN D [Concomitant]
     Dosage: 1000 IU, UNK
  6. TIMOLOL [Concomitant]
     Dosage: 0.5 %, UNK
     Route: 047

REACTIONS (1)
  - Furuncle [Recovered/Resolved]
